FAERS Safety Report 21728876 (Version 1)
Quarter: 2022Q4

REPORT INFORMATION
  Report Type: Report from Study
  Country: DE (occurrence: DE)
  Receive Date: 20221214
  Receipt Date: 20221214
  Transmission Date: 20230113
  Serious: Yes (Death, Life-Threatening, Hospitalization)
  Sender: FDA-Public Use
  Company Number: None

PATIENT
  Age: 49 Year
  Sex: Male

DRUGS (13)
  1. CLONIDINE [Suspect]
     Active Substance: CLONIDINE
     Indication: Alcohol abuse
     Dosage: 1350 MILLIGRAM DAILY; DAILY DOSE: 1350 MG MILLIGRAM(S) EVERY DAY ,UNIT DOSE : 1350 MG  , FREQUENCY T
     Dates: start: 20040813, end: 20040905
  2. CLONIDINE [Suspect]
     Active Substance: CLONIDINE
     Indication: Alcohol withdrawal syndrome
     Dosage: 450 MILLIGRAM DAILY; DAILY DOSE: 450 MG MILLIGRAM(S) EVERY DAY , UNIT DOSE :  450 MG  , FREQUENCY TI
     Dates: start: 20040813, end: 200409
  3. AQUAPHOR [Suspect]
     Active Substance: PETROLATUM
     Indication: Hypertension
     Dosage: 80 MILLIGRAM DAILY; DAILY DOSE: 80 MG MILLIGRAM(S) EVERY DAY , UNIT DOSE : 80 MG   , FREQUENCY TIME
     Dates: start: 20040813, end: 200409
  4. AQUAPHOR [Suspect]
     Active Substance: PETROLATUM
     Dosage: 160 MILLIGRAM DAILY; AQUAPHOR /00298701/  , DAILY DOSE: 160 MG MILLIGRAM(S) EVERY DAY , UNIT DOSE :
     Dates: start: 20040813, end: 20040905
  5. PREDNISONE [Suspect]
     Active Substance: PREDNISONE
     Indication: Rash
     Dosage: 60 MILLIGRAM DAILY; DAILY DOSE: 60 MG MILLIGRAM(S) EVERY DAY , UNIT DOSE :60 MG    , FREQUENCY TIME
     Dates: start: 20040904, end: 20040905
  6. UNSPECIFIED INGREDIENT [Suspect]
     Active Substance: UNSPECIFIED INGREDIENT
     Indication: Chronic obstructive pulmonary disease
     Dosage: 4 DOSAGE FORMS DAILY; DAILY DOSE: 4 DF DOSAGE FORM EVERY DAY , UNIT DOSE : 4 DF  , FREQUENCY TIME :
     Dates: start: 20040813, end: 200409
  7. UNSPECIFIED INGREDIENT [Suspect]
     Active Substance: UNSPECIFIED INGREDIENT
     Dosage: DOSE QUANTITY: 2 , FREQUENCY TIME : 1 DAY  , DURATION : 24 DAYS
     Dates: start: 20040813, end: 20040905
  8. FLUTICASONE PROPIONATE\SALMETEROL XINAFOATE [Suspect]
     Active Substance: FLUTICASONE PROPIONATE\SALMETEROL XINAFOATE
     Indication: Chronic obstructive pulmonary disease
     Dosage: 2 DOSAGE FORMS DAILY; DAILY DOSE: 2 DF DOSAGE FORM EVERY DAY , INHALATION POWDER/PRESSURISED INHALAT
     Dates: start: 20040816, end: 20040905
  9. DIMETHINDENE MALEATE [Suspect]
     Active Substance: DIMETHINDENE MALEATE
     Indication: Rhinitis allergic
     Dosage: FREQUENCY TIME : 1 DAY  , DURATION :  19 DAYS
     Dates: start: 20040817, end: 20040905
  10. SPIRONOLACTONE [Suspect]
     Active Substance: SPIRONOLACTONE
     Indication: Polyuria
     Dosage: 200 MILLIGRAM DAILY; DAILY DOSE: 200 MG MILLIGRAM(S) EVERY DAY  UNIT DOSE :  200 MG  , FREQUENCY TIM
     Dates: start: 20040813, end: 200409
  11. ALLOPURINOL [Suspect]
     Active Substance: ALLOPURINOL
     Indication: Hyperuricaemia
     Dosage: 100 MILLIGRAM DAILY; DAILY DOSE: 100 MG MILLIGRAM(S) EVERY DAY , ZYLORIC 100 , UNIT DOSE :  100 MG ,
     Dates: start: 20040905, end: 20040905
  12. PANTOZOL [Suspect]
     Active Substance: PANTOPRAZOLE SODIUM
     Indication: Prophylaxis
     Dosage: 40 MILLIGRAM DAILY; DAILY DOSE: 40 MG MILLIGRAM(S) EVERY DAY ,  PANTOZOL /01263202/ , UNIT DOSE : 40
     Dates: start: 20040813, end: 20040905
  13. SPIRONOLACTONE [Suspect]
     Active Substance: SPIRONOLACTONE
     Indication: Polyuria
     Dosage: 400 MILLIGRAM DAILY; OSYROL /00006201/ , UNIT DOSE :400 MG    , FREQUENCY TIME : 1 DAY   , DURATION
     Dates: start: 20040813, end: 20040905

REACTIONS (12)
  - Macule [Fatal]
  - Oral mucosa erosion [Fatal]
  - Pain of skin [Fatal]
  - Conjunctivitis [Fatal]
  - Lip erosion [Fatal]
  - Blister [Fatal]
  - Pyrexia [Fatal]
  - Pruritus [Fatal]
  - Nikolsky^s sign [Fatal]
  - Toxic epidermal necrolysis [Fatal]
  - Mouth ulceration [Fatal]
  - Erythema [Fatal]

NARRATIVE: CASE EVENT DATE: 20040904
